FAERS Safety Report 8531829 (Version 4)
Quarter: 2012Q4

REPORT INFORMATION
  Report Type: 
  Country: US (occurrence: US)
  Receive Date: 20120426
  Receipt Date: 20121113
  Transmission Date: 20130627
  Serious: Yes (Other)
  Sender: FDA-Public Use
  Company Number: US-PFIZER INC-2012100442

PATIENT
  Age: 62 Year
  Sex: Female
  Weight: 68.03 kg

DRUGS (12)
  1. LYRICA [Suspect]
     Indication: POST HERPETIC NEURALGIA
     Dosage: 75 mg, 2x/day
     Dates: start: 20120330, end: 20120405
  2. LYRICA [Suspect]
     Indication: SHINGLES
     Dosage: 75 mg, 2x/day
     Dates: start: 20120412, end: 20120417
  3. LYRICA [Suspect]
     Dosage: 150 mg, 3x/day
  4. LYRICA [Suspect]
     Dosage: 150 mg, 2x/day
  5. LYRICA [Suspect]
     Dosage: 150 mg, 3x/day
     Dates: start: 201203
  6. NEURONTIN [Suspect]
     Indication: POST HERPETIC NEURALGIA
     Dosage: UNK
     Dates: start: 20120406, end: 20120412
  7. SYNTHROID [Concomitant]
     Indication: HYPOTHYROIDISM
     Dosage: 150 ug, 1x/day
  8. SYNTHROID [Concomitant]
     Dosage: 135 ug, daily
  9. ULTRAM [Concomitant]
     Indication: PAIN
     Dosage: 50 mg, 3x/day
  10. VITAMIN B12 [Concomitant]
     Indication: IMMUNE SYSTEM DISORDER
     Dosage: 5000 mg, 2x/day
  11. L-LYSINE [Concomitant]
     Indication: IMMUNE SYSTEM DISORDER
     Dosage: 1000 mg, daily
  12. STRESS B-COMPLEX [Concomitant]
     Indication: IMMUNE SYSTEM DISORDER
     Dosage: UNK, daily

REACTIONS (3)
  - Carpal tunnel syndrome [Unknown]
  - Hypoaesthesia [Unknown]
  - Drug ineffective [Unknown]
